FAERS Safety Report 6453879-6 (Version None)
Quarter: 2009Q4

REPORT INFORMATION
  Report Type: 
  Country: None (occurrence: None)
  Receive Date: 20091124
  Receipt Date: 20091117
  Transmission Date: 20100525
  Serious: Yes (Other)
  Sender: FDA-Public Use
  Company Number: US-PFIZER INC-2009263739

PATIENT
  Sex: Female
  Weight: 115.65 kg

DRUGS (2)
  1. LYRICA [Suspect]
     Indication: FIBROMYALGIA
     Dosage: 75 MG, 2X/DAY
     Route: 048
     Dates: start: 20080801, end: 20090828
  2. SYNTHROID [Concomitant]
     Dosage: UNK

REACTIONS (28)
  - ABDOMINAL DISCOMFORT [None]
  - ABNORMAL DREAMS [None]
  - CARDIAC DISORDER [None]
  - CONFUSIONAL STATE [None]
  - DEPRESSION [None]
  - DISTURBANCE IN ATTENTION [None]
  - DRUG WITHDRAWAL SYNDROME [None]
  - DRY THROAT [None]
  - DYSARTHRIA [None]
  - DYSGRAPHIA [None]
  - DYSPNOEA [None]
  - FRUSTRATION [None]
  - HEADACHE [None]
  - HYPERSOMNIA [None]
  - HYPERTENSION [None]
  - JOINT SWELLING [None]
  - KIDNEY INFECTION [None]
  - MEMORY IMPAIRMENT [None]
  - MOOD ALTERED [None]
  - NASAL DISORDER [None]
  - NERVOUSNESS [None]
  - OEDEMA PERIPHERAL [None]
  - SUICIDAL IDEATION [None]
  - URINARY TRACT INFECTION [None]
  - VISION BLURRED [None]
  - VISUAL ACUITY REDUCED [None]
  - WEIGHT DECREASED [None]
  - WEIGHT INCREASED [None]
